FAERS Safety Report 24327119 (Version 1)
Quarter: 2024Q3

REPORT INFORMATION
  Report Type: Spontaneous
  Country: US (occurrence: US)
  Receive Date: 20240917
  Receipt Date: 20240917
  Transmission Date: 20241017
  Serious: No
  Sender: GLAXOSMITHKLINE
  Company Number: US-GSK-US2024AMR111790

PATIENT
  Age: 77 Year
  Sex: Male
  Weight: 81.6 kg

DRUGS (4)
  1. BREO ELLIPTA [Suspect]
     Active Substance: FLUTICASONE FUROATE\VILANTEROL TRIFENATATE
     Indication: Product used for unknown indication
     Dosage: 1 PUFF(S), 200-25MCG
  2. TYVASO DPI [Suspect]
     Active Substance: TREPROSTINIL
     Indication: Pulmonary arterial hypertension
     Dosage: 16 UG, QID
     Route: 055
     Dates: start: 20240621
  3. TYVASO DPI [Suspect]
     Active Substance: TREPROSTINIL
     Dosage: 32 UG, QID
  4. TYVASO DPI [Suspect]
     Active Substance: TREPROSTINIL
     Dosage: 64 UG, QID

REACTIONS (16)
  - Decreased appetite [Unknown]
  - Diplopia [Recovered/Resolved]
  - Throat irritation [Unknown]
  - Diarrhoea [Unknown]
  - Nausea [Unknown]
  - Abdominal distension [Unknown]
  - Productive cough [Unknown]
  - Headache [Unknown]
  - Rhinorrhoea [Unknown]
  - Cough [Recovering/Resolving]
  - Seasonal allergy [Unknown]
  - Dyspnoea exertional [Recovering/Resolving]
  - Increased appetite [Unknown]
  - Dizziness postural [Unknown]
  - Peripheral pulse decreased [Unknown]
  - Product communication issue [Unknown]

NARRATIVE: CASE EVENT DATE: 20240630
